FAERS Safety Report 25677597 (Version 1)
Quarter: 2025Q3

REPORT INFORMATION
  Report Type: Spontaneous
  Country: US (occurrence: None)
  Receive Date: 20250813
  Receipt Date: 20250813
  Transmission Date: 20251021
  Serious: Yes (Hospitalization)
  Sender: FDA-CTU
  Company Number: None

PATIENT
  Sex: Male

DRUGS (14)
  1. BIKTARVY [Suspect]
     Active Substance: BICTEGRAVIR SODIUM\EMTRICITABINE\TENOFOVIR ALAFENAMIDE FUMARATE
     Indication: HIV infection
     Dosage: FREQUENCY : DAILY;?
     Route: 048
     Dates: start: 20250619
  2. BIKTARVY [Concomitant]
     Active Substance: BICTEGRAVIR SODIUM\EMTRICITABINE\TENOFOVIR ALAFENAMIDE FUMARATE
  3. XIFAXAN [Concomitant]
     Active Substance: RIFAXIMIN
  4. QUETIAPINE [Concomitant]
     Active Substance: QUETIAPINE
  5. DICLOFENAC [Concomitant]
     Active Substance: DICLOFENAC
  6. Clobetasol prop 0.05% cream [Concomitant]
  7. OXYCODONE [Concomitant]
     Active Substance: OXYCODONE
  8. LACTULOSE [Concomitant]
     Active Substance: LACTULOSE
  9. CELECOXIB [Concomitant]
     Active Substance: CELECOXIB
  10. ALBUTEROL [Concomitant]
     Active Substance: ALBUTEROL
  11. LORAZEPAM [Concomitant]
     Active Substance: LORAZEPAM
  12. ONDANSETRON [Concomitant]
     Active Substance: ONDANSETRON
  13. Prochlorperazine 10mg [Concomitant]
  14. Melatonin 10mg [Concomitant]

REACTIONS (1)
  - Lung neoplasm malignant [None]
